FAERS Safety Report 5921400-4 (Version None)
Quarter: 2008Q4

REPORT INFORMATION
  Report Type: 
  Country: None (occurrence: None)
  Receive Date: 20081014
  Receipt Date: 20081002
  Transmission Date: 20090506
  Serious: Yes (Other)
  Sender: FDA-Public Use
  Company Number: 2008-171867-NL

PATIENT
  Age: 18 Year
  Sex: Female
  Weight: 61.2 kg

DRUGS (1)
  1. IMPLANON [Suspect]
     Dosage: TRAINED PHYSICIAN
     Dates: start: 20080105, end: 20080206

REACTIONS (3)
  - ABORTION SPONTANEOUS [None]
  - DRUG EXPOSURE DURING PREGNANCY [None]
  - PREGNANCY WITH IMPLANT CONTRACEPTIVE [None]
